APPROVED DRUG PRODUCT: VIGABATRIN
Active Ingredient: VIGABATRIN
Strength: 500MG/PACKET
Dosage Form/Route: FOR SOLUTION;ORAL
Application: A214671 | Product #001
Applicant: ZYDUS LIFESCIENCES GLOBAL FZE
Approved: Mar 2, 2023 | RLD: No | RS: No | Type: DISCN